FAERS Safety Report 18605404 (Version 1)
Quarter: 2020Q4

REPORT INFORMATION
  Report Type: Spontaneous
  Country: US (occurrence: US)
  Receive Date: 20201211
  Receipt Date: 20201211
  Transmission Date: 20210114
  Serious: No
  Sender: FDA-Public Use
  Company Number: US-009507513-2012USA005392

PATIENT
  Sex: Female

DRUGS (1)
  1. IMPLANON [Suspect]
     Active Substance: ETONOGESTREL
     Dosage: 1 DOSAGE FORM
     Route: 059
     Dates: end: 2010

REACTIONS (5)
  - Breast pain [Unknown]
  - Alopecia [Unknown]
  - Night sweats [Unknown]
  - Device breakage [Recovered/Resolved]
  - Mood swings [Unknown]

NARRATIVE: CASE EVENT DATE: 2010
